FAERS Safety Report 5237211-1 (Version None)
Quarter: 2007Q1

REPORT INFORMATION
  Report Type: 
  Country: None (occurrence: None)
  Receive Date: 20061208
  Receipt Date: 20050315
  Transmission Date: 20070707
  Serious: Yes (Other)
  Sender: FDA-Public Use
  Company Number: 2005UW04125

PATIENT
  Age: 65 Year
  Sex: Female
  Weight: 81.6 kg

DRUGS (10)
  1. CRESTOR [Suspect]
     Indication: HYPERCHOLESTEROLAEMIA
     Dosage: 10 MG PO
     Route: 048
     Dates: start: 20050101
  2. DILTIAZEM [Concomitant]
  3. VASOTEC [Concomitant]
  4. HYDROCHLOROTHIAZIDE [Concomitant]
  5. LIBRAX [Concomitant]
  6. FIORICET [Concomitant]
  7. NEXIUM [Concomitant]
  8. PROZAC [Concomitant]
  9. DARVOCET-N 100 [Concomitant]
  10. ECOTRIN [Concomitant]

REACTIONS (2)
  - ASTHENIA [None]
  - HYPOAESTHESIA [None]
